FAERS Safety Report 5152203-9 (Version None)
Quarter: 2006Q4

REPORT INFORMATION
  Report Type: 
  Country: None (occurrence: None)
  Receive Date: 20061116
  Receipt Date: 20060816
  Transmission Date: 20070319
  Serious: Yes (Other)
  Sender: FDA-Public Use
  Company Number: DE-GLAXOSMITHKLINE-D0050630B

PATIENT
  Sex: Male
  Weight: 0.7 kg

DRUGS (5)
  1. EPIVIR [Suspect]
     Dates: start: 20060105
  2. RETROVIR [Suspect]
     Dates: start: 20060425, end: 20060425
  3. ZERIT [Suspect]
     Dates: start: 20060105
  4. VIRAMUNE [Suspect]
     Dates: start: 20060105
  5. FOLATE [Concomitant]

REACTIONS (3)
  - CONGENITAL CYTOMEGALOVIRUS INFECTION [None]
  - DEAFNESS UNILATERAL [None]
  - PREMATURE BABY [None]
